FAERS Safety Report 21275432 (Version 2)
Quarter: 2022Q3

REPORT INFORMATION
  Report Type: Report from Study
  Country: CA (occurrence: CA)
  Receive Date: 20220831
  Receipt Date: 20220901
  Transmission Date: 20221026
  Serious: Yes (Other)
  Sender: FDA-Public Use
  Company Number: CA-HLS-202201633

PATIENT
  Age: 30 Year
  Sex: Male

DRUGS (3)
  1. CLOZARIL [Suspect]
     Active Substance: CLOZAPINE
     Indication: Schizophrenia
     Dosage: AT BEDTIME ??DRUG START DATE: 26-JUL-2022
     Route: 048
  2. CLOZARIL [Suspect]
     Active Substance: CLOZAPINE
     Indication: Schizophrenia
     Dosage: AT BEDTIME
     Route: 048
  3. QUETIAPINE [Concomitant]
     Active Substance: QUETIAPINE
     Dosage: AT BEDTIME AS NEEDED
     Route: 065

REACTIONS (16)
  - Akathisia [Unknown]
  - Substance use disorder [Unknown]
  - Hallucinations, mixed [Not Recovered/Not Resolved]
  - Disturbance in attention [Unknown]
  - Dysphoria [Not Recovered/Not Resolved]
  - Limb discomfort [Recovered/Resolved]
  - Electrocardiogram ST segment elevation [Unknown]
  - Dizziness [Unknown]
  - Nocturia [Unknown]
  - Platelet count increased [Unknown]
  - Psychotic symptom [Unknown]
  - Schizophrenia [Unknown]
  - Sedation [Unknown]
  - Social anxiety disorder [Unknown]
  - Thinking abnormal [Not Recovered/Not Resolved]
  - Eosinophilia [Not Recovered/Not Resolved]

NARRATIVE: CASE EVENT DATE: 20220401
